FAERS Safety Report 8182284-X (Version None)
Quarter: 2012Q1

REPORT INFORMATION
  Report Type: 
  Country: None (occurrence: None)
  Receive Date: 20120302
  Receipt Date: 20120227
  Transmission Date: 20120608
  Serious: Yes (Other)
  Sender: FDA-Public Use
  Company Number: PHEH2012US001977

PATIENT
  Age: 79 Year
  Sex: Female
  Weight: 75 kg

DRUGS (1)
  1. SANDOSTATIN LAR [Suspect]
     Indication: CARCINOID TUMOUR
     Dosage: UNK

REACTIONS (3)
  - DIARRHOEA [None]
  - NEPHROLITHIASIS [None]
  - HYPERGLYCAEMIA [None]
